FAERS Safety Report 10482434 (Version 1)
Quarter: 2014Q3

REPORT INFORMATION
  Report Type: Report from Study
  Country: NL (occurrence: NL)
  Receive Date: 20140929
  Receipt Date: 20140929
  Transmission Date: 20150326
  Serious: Yes (Death)
  Sender: FDA-Public Use
  Company Number: US-ASTRAZENECA-2014SE72197

PATIENT
  Age: 120 Day
  Sex: Male

DRUGS (3)
  1. SYNAGIS [Suspect]
     Active Substance: PALIVIZUMAB
     Indication: HEART DISEASE CONGENITAL
     Route: 030
     Dates: start: 20140903, end: 20140912
  2. LACTULOSE. [Concomitant]
     Active Substance: LACTULOSE
     Indication: CONSTIPATION
     Dosage: 1 TIME DAILY
     Route: 048
     Dates: end: 20140912
  3. MICROLOAX [Concomitant]
     Indication: CONSTIPATION
     Route: 054
     Dates: end: 20140912

REACTIONS (1)
  - Death [Fatal]

NARRATIVE: CASE EVENT DATE: 20140912
